FAERS Safety Report 23225875 (Version 1)
Quarter: 2023Q4

REPORT INFORMATION
  Report Type: Spontaneous
  Country: IN (occurrence: IN)
  Receive Date: 20231124
  Receipt Date: 20231124
  Transmission Date: 20240109
  Serious: Yes (Hospitalization, Other)
  Sender: FDA-Public Use
  Company Number: IN-009507513-2311IND008653

PATIENT
  Age: 63 Year
  Sex: Female

DRUGS (2)
  1. APREPITANT [Interacting]
     Active Substance: APREPITANT
     Indication: Nausea
     Dosage: UNK
  2. IFOSFAMIDE [Suspect]
     Active Substance: IFOSFAMIDE
     Indication: Uterine cancer
     Dosage: UNK

REACTIONS (2)
  - Toxic encephalopathy [Recovering/Resolving]
  - Inhibitory drug interaction [Recovering/Resolving]
